FAERS Safety Report 24892148 (Version 1)
Quarter: 2025Q1

REPORT INFORMATION
  Report Type: Spontaneous
  Country: US (occurrence: US)
  Receive Date: 20250128
  Receipt Date: 20250128
  Transmission Date: 20250408
  Serious: No
  Sender: IBSA INSTITUT BIOCHIMIQUE
  Company Number: US-IBSA PHARMA INC.-2024IBS000033

PATIENT

DRUGS (2)
  1. LICART [Suspect]
     Active Substance: DICLOFENAC EPOLAMINE
     Indication: Neck pain
     Dosage: 1 POUCH, QD
     Route: 061
  2. LICART [Suspect]
     Active Substance: DICLOFENAC EPOLAMINE
     Indication: Arthralgia

REACTIONS (3)
  - Application site pain [Unknown]
  - Application site erythema [Unknown]
  - Product adhesion issue [Unknown]
